FAERS Safety Report 7264740-1 (Version None)
Quarter: 2011Q1

REPORT INFORMATION
  Report Type: 
  Country: None (occurrence: None)
  Receive Date: 20110131
  Receipt Date: 20110127
  Transmission Date: 20110831
  Serious: Yes (Death)
  Sender: FDA-Public Use
  Company Number: PHHY2010CA86989

PATIENT
  Sex: Female
  Weight: 59.5 kg

DRUGS (1)
  1. RIVASTIGMINE [Suspect]
     Indication: DEMENTIA ALZHEIMER'S TYPE
     Dosage: 10 MG, UNK
     Route: 003
     Dates: start: 20090614

REACTIONS (1)
  - LUNG NEOPLASM MALIGNANT [None]
